FAERS Safety Report 13779783 (Version 2)
Quarter: 2018Q3

REPORT INFORMATION
  Report Type: Other
  Country: US (occurrence: US)
  Receive Date: 20170723
  Receipt Date: 20180720
  Transmission Date: 20181010
  Serious: Yes (Congenital Anomaly, Other)
  Sender: FDA-Public Use
  Company Number: US-KADMON PHARMACEUTICALS, LLC-KAD201306-000760

PATIENT
  Age: 6 Day
  Sex: Female
  Weight: 11.51 kg

DRUGS (4)
  1. PRENATAL VITAMINS [Suspect]
     Active Substance: VITAMINS
     Indication: PREGNANCY
  2. ALBUTEROL. [Suspect]
     Active Substance: ALBUTEROL
     Indication: ASTHMA
  3. PEGASYS [Suspect]
     Active Substance: PEGINTERFERON ALFA-2A
     Indication: HEPATITIS C
     Dates: end: 201205
  4. RIBAVIRIN. [Suspect]
     Active Substance: RIBAVIRIN
     Indication: HEPATITIS C
     Dates: end: 201205

REACTIONS (7)
  - Vomiting [Not Recovered/Not Resolved]
  - Jaundice [Recovered/Resolved]
  - Atrial septal defect [Recovered/Resolved]
  - Exposure to communicable disease [Not Recovered/Not Resolved]
  - Foetal exposure during pregnancy [Unknown]
  - Congenital arterial malformation [Unknown]
  - Congenital tongue anomaly [Not Recovered/Not Resolved]

NARRATIVE: CASE EVENT DATE: 20130322
